FAERS Safety Report 6483142-9 (Version None)
Quarter: 2009Q4

REPORT INFORMATION
  Report Type: 
  Country: None (occurrence: None)
  Receive Date: 20091209
  Receipt Date: 20091130
  Transmission Date: 20100525
  Serious: Yes (Death)
  Sender: FDA-Public Use
  Company Number: KR-ROCHE-672285

PATIENT
  Age: 18 Year
  Sex: Female

DRUGS (1)
  1. TAMIFLU [Suspect]
     Indication: H1N1 INFLUENZA
     Dosage: DRUG REPORTED AS TAMIFLU/ OSELTAMIVIR PHOSPHATE
     Route: 065

REACTIONS (1)
  - DISEASE PROGRESSION [None]
